FAERS Safety Report 14004652 (Version 1)
Quarter: 2017Q3

REPORT INFORMATION
  Report Type: Spontaneous
  Country: JP (occurrence: JP)
  Receive Date: 20170922
  Receipt Date: 20170922
  Transmission Date: 20171128
  Serious: No
  Sender: FDA-Public Use
  Company Number: JP-UCBSA-2017037483

PATIENT
  Sex: Male

DRUGS (2)
  1. PHENYTOIN SOD. [Concomitant]
     Indication: STATUS EPILEPTICUS
     Dosage: 300 MG, DAILY DOSE
  2. LEVETIRACETAM. [Suspect]
     Active Substance: LEVETIRACETAM
     Indication: PRODUCT USED FOR UNKNOWN INDICATION
     Dosage: UNKNOWN DOSE

REACTIONS (1)
  - Leukopenia [Unknown]
